FAERS Safety Report 10396330 (Version 1)
Quarter: 2014Q1

REPORT INFORMATION
  Report Type: Spontaneous
  Country: US (occurrence: None)
  Receive Date: 20130815
  Receipt Date: 20130815
  Transmission Date: 20141002
  Serious: Yes (Hospitalization, Other)
  Sender: FDA-Public Use
  Company Number: ADR-2013-00243

PATIENT
  Sex: Female

DRUGS (3)
  1. BACLOFEN INTRATHECAL [Suspect]
     Indication: PAIN
     Route: 037
  2. DILAUDID (HYDROMORPHONE) [Concomitant]
  3. BUPIVACAINE [Concomitant]

REACTIONS (17)
  - Blood pressure decreased [None]
  - Pain [None]
  - Neck pain [None]
  - Headache [None]
  - No therapeutic response [None]
  - Myalgia [None]
  - Formication [None]
  - Wheezing [None]
  - Decreased appetite [None]
  - Unevaluable event [None]
  - Intestinal obstruction [None]
  - Muscle spasms [None]
  - Neoplasm progression [None]
  - Myoclonus [None]
  - Joint dislocation [None]
  - Burning sensation [None]
  - Sleep disorder [None]
